FAERS Safety Report 9292769 (Version 3)
Quarter: 2013Q2

REPORT INFORMATION
  Report Type: Spontaneous
  Country: JP (occurrence: JP)
  Receive Date: 20130516
  Receipt Date: 20130529
  Transmission Date: 20140414
  Serious: Yes (Life-Threatening, Hospitalization, Other)
  Sender: FDA-Public Use
  Company Number: JP-PFIZER INC-2013122772

PATIENT
  Age: 86 Year
  Sex: Female
  Weight: 39.4 kg

DRUGS (15)
  1. JZOLOFT [Suspect]
     Dosage: 25 MG, 1X/DAY
     Route: 048
     Dates: start: 20130327, end: 20130402
  2. LOXONIN [Suspect]
     Dosage: 60 MG, 2X/DAY
     Route: 048
     Dates: end: 20130402
  3. SAWATENE [Concomitant]
     Dosage: 500 MG, 3X/DAY
     Route: 048
     Dates: end: 20130402
  4. ASVERIN [Concomitant]
     Dosage: 20 MG, 3X/DAY
     Route: 048
     Dates: end: 20130402
  5. AMLODIPINE [Concomitant]
     Dosage: 5 MG, 1X/DAY
     Route: 048
     Dates: end: 20130402
  6. AVAPRO [Concomitant]
     Dosage: 100 MG, 1X/DAY
     Route: 048
     Dates: end: 20130402
  7. PRAMEVAN [Concomitant]
     Dosage: 10 MG, 1X/DAY
     Route: 048
     Dates: end: 20130402
  8. GASPORT-D [Concomitant]
     Dosage: 10 MG, 1X/DAY
     Route: 048
     Dates: end: 20130402
  9. STOMIN A [Concomitant]
     Dosage: 2 TABLETS, 2X/DAY
     Route: 048
     Dates: end: 20130402
  10. DEPAS [Concomitant]
     Dosage: 0.5 MG, 1X/DAY
     Route: 048
     Dates: end: 20130402
  11. ALOSENN [Concomitant]
     Indication: CONSTIPATION
     Dosage: 0.5 G, 1X/DAY
     Route: 048
     Dates: end: 20130402
  12. BORRAZA-G [Concomitant]
     Dosage: 2.4 G, 2X/DAY
     Route: 061
     Dates: end: 20130402
  13. CHOREITOU [Concomitant]
     Dosage: 2.5 G, 2X/DAY
     Route: 048
     Dates: end: 20130402
  14. XYZAL [Concomitant]
     Dosage: 5 MG, 1X/DAY
     Route: 048
     Dates: end: 20130402
  15. LACRIMIN OPHTHALMIC SOLUTION [Concomitant]
     Dosage: 1 DROP, SEVERAL TIMES/DAY
     Route: 047
     Dates: end: 20130402

REACTIONS (3)
  - Inappropriate antidiuretic hormone secretion [Recovered/Resolved]
  - Pneumonia aspiration [Recovered/Resolved]
  - Neurogenic bladder [Not Recovered/Not Resolved]
